FAERS Safety Report 14681597 (Version 2)
Quarter: 2018Q2

REPORT INFORMATION
  Report Type: Spontaneous
  Country: JP (occurrence: JP)
  Receive Date: 20180326
  Receipt Date: 20180427
  Transmission Date: 20180711
  Serious: Yes (Hospitalization, Other)
  Sender: FDA-Public Use
  Company Number: JP-PFIZER INC-2018122963

PATIENT
  Age: 42 Year
  Sex: Male
  Weight: 57 kg

DRUGS (9)
  1. 5-FU /00098801/ [Concomitant]
     Active Substance: FLUOROURACIL
     Indication: COLON CANCER
     Dosage: 420 MG/BODY (252.3 MG/M2)
     Route: 040
     Dates: start: 20180124, end: 20180221
  2. ALOXI [Concomitant]
     Active Substance: PALONOSETRON HYDROCHLORIDE
     Dosage: UNK
     Dates: start: 20180124, end: 20180221
  3. CAMPTO [Suspect]
     Active Substance: IRINOTECAN
     Indication: COLON CANCER
     Dosage: 150 MG/M2, 1X/DAY
     Route: 041
     Dates: start: 20170920
  4. DEXAMETHASONE. [Concomitant]
     Active Substance: DEXAMETHASONE
     Dosage: UNK
     Dates: start: 20180124, end: 20180221
  5. CAMPTO [Suspect]
     Active Substance: IRINOTECAN
     Dosage: 250 MG, 1X/DAY
     Route: 041
     Dates: start: 20180207, end: 20180207
  6. ZALTRAP [Concomitant]
     Active Substance: ZIV-AFLIBERCEPT
     Indication: COLON CANCER
     Dosage: 240 MG/BODY
     Dates: start: 20180124, end: 20180221
  7. CAMPTO [Suspect]
     Active Substance: IRINOTECAN
     Dosage: 250 MG, 1X/DAY
     Route: 041
     Dates: start: 20180221, end: 20180221
  8. CAMPTO [Suspect]
     Active Substance: IRINOTECAN
     Dosage: 250 MG, 1X/DAY
     Route: 041
     Dates: start: 20180124, end: 20180124
  9. LEVOFOLINATE CALCIUM [Concomitant]
     Active Substance: LEVOLEUCOVORIN CALCIUM
     Indication: COLON CANCER
     Dosage: 200 MG/BODY (120.1 MG/M2)
     Dates: start: 20180124, end: 20180221

REACTIONS (13)
  - Blood chloride increased [Recovered/Resolved]
  - Blood lactate dehydrogenase increased [Recovered/Resolved]
  - C-reactive protein increased [Recovered/Resolved]
  - Haemoglobin decreased [Not Recovered/Not Resolved]
  - Platelet count decreased [Not Recovered/Not Resolved]
  - Oesophageal varices haemorrhage [Recovered/Resolved]
  - Feeling abnormal [Unknown]
  - Blood urea increased [Recovered/Resolved]
  - Somnolence [Unknown]
  - White blood cell count decreased [Not Recovered/Not Resolved]
  - Blood alkaline phosphatase increased [Recovered/Resolved]
  - Blood bilirubin increased [Recovered/Resolved]
  - Aspartate aminotransferase increased [Recovered/Resolved]

NARRATIVE: CASE EVENT DATE: 20180221
